FAERS Safety Report 14765105 (Version 1)
Quarter: 2018Q2

REPORT INFORMATION
  Report Type: Spontaneous
  Country: FI (occurrence: FI)
  Receive Date: 20180416
  Receipt Date: 20180416
  Transmission Date: 20180711
  Serious: Yes (Life-Threatening, Hospitalization)
  Sender: FDA-Public Use
  Company Number: FI-PFIZER INC-2018134162

PATIENT
  Age: 31 Year
  Sex: Female

DRUGS (1)
  1. CYTOTEC [Suspect]
     Active Substance: MISOPROSTOL
     Indication: ABORTION
     Dosage: 0.8 MG,X1
     Route: 067
     Dates: start: 20180303, end: 20180303

REACTIONS (8)
  - Swelling [Recovered/Resolved]
  - Chills [Recovered/Resolved]
  - Product use in unapproved indication [Unknown]
  - Pyrexia [Recovered/Resolved]
  - Rash [Recovered/Resolved]
  - Urticaria [Recovering/Resolving]
  - Dyspnoea [Recovered/Resolved]
  - Anaphylactic reaction [Recovering/Resolving]

NARRATIVE: CASE EVENT DATE: 201803
